FAERS Safety Report 7919054-0 (Version None)
Quarter: 2011Q4

REPORT INFORMATION
  Report Type: 
  Country: None (occurrence: None)
  Receive Date: 20111116
  Receipt Date: 20111107
  Transmission Date: 20120403
  Serious: Yes (Hospitalization)
  Sender: FDA-Public Use
  Company Number: CA-ASTRAZENECA-2011SE67294

PATIENT
  Age: 67 Year
  Sex: Male

DRUGS (15)
  1. ASPIRIN [Concomitant]
     Route: 048
  2. AVAPRO [Concomitant]
     Route: 048
  3. DOCUSATE SODIUM [Concomitant]
     Route: 048
  4. LANTUS [Concomitant]
  5. NOVORAPID [Concomitant]
  6. TRUSOPT [Concomitant]
  7. APO FUROSEMIDE [Concomitant]
     Route: 048
  8. EZETIMIBE [Concomitant]
     Route: 048
  9. FOLIC ACID [Concomitant]
     Route: 048
  10. NITROGLYCERIN [Concomitant]
  11. GEN-ACEBUTOLOL [Concomitant]
     Route: 048
  12. HUMALOG [Concomitant]
  13. CRESTOR [Suspect]
     Route: 048
  14. LANSOPRAZOLE [Concomitant]
     Route: 048
  15. NOVO-DILTIAZEM HCL [Concomitant]

REACTIONS (2)
  - DYSPNOEA [None]
  - RESPIRATORY RATE INCREASED [None]
